FAERS Safety Report 23281262 (Version 1)
Quarter: 2023Q4

REPORT INFORMATION
  Report Type: Spontaneous
  Country: FR (occurrence: FR)
  Receive Date: 20231211
  Receipt Date: 20231211
  Transmission Date: 20240109
  Serious: Yes (Death, Other)
  Sender: FDA-Public Use
  Company Number: None

PATIENT

DRUGS (1)
  1. ADVIL [Suspect]
     Active Substance: IBUPROFEN
     Indication: Pain
     Dosage: 1 DF (DOSAGE FORM)
     Route: 048
     Dates: start: 20231110, end: 20231110

REACTIONS (4)
  - Compartment syndrome [Fatal]
  - Necrotising fasciitis streptococcal [Fatal]
  - Septic shock [Fatal]
  - Condition aggravated [Fatal]

NARRATIVE: CASE EVENT DATE: 20231111
